FAERS Safety Report 9975626 (Version 1)
Quarter: 2014Q1

REPORT INFORMATION
  Report Type: Report from Study
  Country: US (occurrence: US)
  Receive Date: 20140306
  Receipt Date: 20140306
  Transmission Date: 20141002
  Serious: No
  Sender: FDA-Public Use
  Company Number: US-ABBVIE-13P-163-1155817-00

PATIENT
  Age: 64 Year
  Sex: Female
  Weight: 112.59 kg

DRUGS (2)
  1. HUMIRA [Suspect]
     Indication: RHEUMATOID ARTHRITIS
     Route: 058
     Dates: start: 201305, end: 20130913
  2. HUMIRA [Suspect]
     Route: 058
     Dates: start: 20130930

REACTIONS (2)
  - Femur fracture [Recovering/Resolving]
  - Fall [Recovering/Resolving]
